FAERS Safety Report 14424108 (Version 2)
Quarter: 2018Q1

REPORT INFORMATION
  Report Type: Report from Study
  Country: GB (occurrence: GB)
  Receive Date: 20180123
  Receipt Date: 20180313
  Transmission Date: 20180509
  Serious: Yes (Other)
  Sender: FDA-Public Use
  Company Number: PHHY2018GB005224

PATIENT
  Age: 37 Year
  Sex: Female

DRUGS (1)
  1. COSENTYX [Suspect]
     Active Substance: SECUKINUMAB
     Indication: PSORIATIC ARTHROPATHY
     Dosage: 300 MG, QMO, PRE-FILLED SYRINGE
     Route: 058
     Dates: start: 20171101

REACTIONS (3)
  - Cerebral thrombosis [Unknown]
  - Inappropriate schedule of drug administration [Unknown]
  - Fall [Unknown]

NARRATIVE: CASE EVENT DATE: 20171101
